FAERS Safety Report 4430870-2 (Version None)
Quarter: 2004Q3

REPORT INFORMATION
  Report Type: 
  Country: None (occurrence: None)
  Receive Date: 20040823
  Receipt Date: 20040810
  Transmission Date: 20050211
  Serious: Yes (Hospitalization)
  Sender: FDA-Public Use
  Company Number: FR-GLAXOSMITHKLINE-B0341979A

PATIENT
  Age: 79 Year
  Sex: Female

DRUGS (5)
  1. DEROXAT [Suspect]
     Indication: DEPRESSION
     Dosage: 20MG PER DAY
     Route: 048
  2. PREVISCAN 20 [Suspect]
     Indication: PULMONARY EMBOLISM
     Route: 048
     Dates: end: 20040716
  3. TAHOR [Concomitant]
     Dosage: 10MG PER DAY
     Route: 048
  4. MOVICOL [Concomitant]
     Indication: CONSTIPATION
     Dosage: 1BAG PER DAY
     Route: 048
  5. FONZYLANE [Concomitant]
     Dosage: 300MG TWICE PER DAY
     Route: 048

REACTIONS (9)
  - CEREBRAL HAEMATOMA [None]
  - DRUG INTERACTION [None]
  - DYSKINESIA [None]
  - FALL [None]
  - HEADACHE [None]
  - NERVE STIMULATION TEST ABNORMAL [None]
  - PYREXIA [None]
  - TREMOR [None]
  - VENOUS INSUFFICIENCY [None]
